FAERS Safety Report 14011910 (Version 1)
Quarter: 2017Q3

REPORT INFORMATION
  Report Type: Spontaneous
  Country: US (occurrence: US)
  Receive Date: 20170926
  Receipt Date: 20170926
  Transmission Date: 20171128
  Serious: Yes (Hospitalization)
  Sender: FDA-Public Use
  Company Number: US-HORIZON-RAV-0239-2017

PATIENT
  Age: 44 Year
  Sex: Male
  Weight: 200 kg

DRUGS (5)
  1. XANAX [Concomitant]
     Active Substance: ALPRAZOLAM
  2. RAVICTI [Suspect]
     Active Substance: GLYCEROL PHENYLBUTYRATE
     Indication: ORNITHINE TRANSCARBAMOYLASE DEFICIENCY
     Dosage: 5 ML, TID
     Route: 048
     Dates: start: 20131206, end: 20131231
  3. ABILIFY [Concomitant]
     Active Substance: ARIPIPRAZOLE
  4. LEXAPRO [Concomitant]
     Active Substance: ESCITALOPRAM OXALATE
  5. CENTRUM MULTIVITAMIN [Concomitant]

REACTIONS (15)
  - Restlessness [Unknown]
  - Rash pruritic [Unknown]
  - Flat affect [Unknown]
  - Irritability [Unknown]
  - Asthenia [Unknown]
  - Angioedema [Recovered/Resolved]
  - Back pain [Unknown]
  - Oropharyngeal swelling [Recovering/Resolving]
  - Breath odour [Unknown]
  - Myalgia [Unknown]
  - Malaise [Unknown]
  - Somnolence [Unknown]
  - Abnormal behaviour [Unknown]
  - Skin odour abnormal [Unknown]
  - Headache [Unknown]

NARRATIVE: CASE EVENT DATE: 20131213
